FAERS Safety Report 18062205 (Version 4)
Quarter: 2021Q3

REPORT INFORMATION
  Report Type: Report from Study
  Country: US (occurrence: US)
  Receive Date: 20200724
  Receipt Date: 20210806
  Transmission Date: 20211014
  Serious: Yes (Death, Hospitalization, Other)
  Sender: FDA-Public Use
  Company Number: US-SHIRE-US202023755

PATIENT
  Age: 62 Year
  Sex: Female

DRUGS (3)
  1. LANADELUMAB [Suspect]
     Active Substance: LANADELUMAB
     Indication: HEREDITARY ANGIOEDEMA
     Dosage: UNK
     Route: 065
     Dates: start: 20181001
  2. LANADELUMAB [Suspect]
     Active Substance: LANADELUMAB
     Indication: PROPHYLAXIS
     Dosage: 300 MILLIGRAM, Q2WEEKS
     Route: 058
     Dates: start: 20181008
  3. LANADELUMAB [Suspect]
     Active Substance: LANADELUMAB
     Dosage: 300 MILLIGRAM, Q2WEEKS
     Route: 065
     Dates: start: 20200710

REACTIONS (5)
  - B-cell lymphoma [Fatal]
  - Hereditary angioedema [Unknown]
  - Pneumonia [Fatal]
  - COVID-19 [Unknown]
  - Drug ineffective [Unknown]

NARRATIVE: CASE EVENT DATE: 20201201
